FAERS Safety Report 6767160-9 (Version None)
Quarter: 2010Q2

REPORT INFORMATION
  Report Type: 
  Country: None (occurrence: None)
  Receive Date: 20100614
  Receipt Date: 20100608
  Transmission Date: 20101027
  Serious: Yes (Life-Threatening, Hospitalization, Other)
  Sender: FDA-Public Use
  Company Number: US-ELI_LILLY_AND_COMPANY-US201006002817

PATIENT
  Sex: Female
  Weight: 74.83 kg

DRUGS (12)
  1. BYETTA [Suspect]
     Indication: TYPE 2 DIABETES MELLITUS
     Dosage: 5 UG, 2/D
     Route: 058
     Dates: start: 20060101
  2. BYETTA [Suspect]
     Dosage: 10 UG, 2/D
     Route: 058
  3. TOPROL-XL [Concomitant]
     Indication: BLOOD PRESSURE
     Dosage: 25 MG, DAILY (1/D)
  4. ALTACE [Concomitant]
     Indication: BLOOD PRESSURE
     Dosage: 5 MG, DAILY (1/D)
  5. PLAVIX [Concomitant]
     Dosage: 75 MG, DAILY (1/D)
  6. ASPIRIN [Concomitant]
     Dosage: 81 MG, DAILY (1/D)
  7. LASIX [Concomitant]
     Indication: FLUID RETENTION
     Dosage: 40 MG, DAILY (1/D)
  8. FOSAMAX [Concomitant]
     Dosage: 70 MG, WEEKLY (1/W)
  9. ZOCOR [Concomitant]
     Indication: BLOOD CHOLESTEROL
     Dosage: 40 MG, DAILY (1/D)
  10. ALEVE (CAPLET) [Concomitant]
     Dosage: 1 D/F, 2/D
  11. IMDUR [Concomitant]
     Dosage: 90 MG, DAILY (1/D)
  12. GLUCOPHAGE [Concomitant]
     Indication: DIABETES MELLITUS
     Dosage: 500 MG, DAILY (1/D)
     Dates: start: 20060101

REACTIONS (9)
  - ABDOMINAL DISCOMFORT [None]
  - ABDOMINAL PAIN UPPER [None]
  - BACK PAIN [None]
  - CARDIAC DISORDER [None]
  - CHEST PAIN [None]
  - DEVICE FAILURE [None]
  - DYSPNOEA [None]
  - FLATULENCE [None]
  - POST PROCEDURAL HAEMORRHAGE [None]
